FAERS Safety Report 16077409 (Version 1)
Quarter: 2019Q1

REPORT INFORMATION
  Report Type: Spontaneous
  Country: US (occurrence: US)
  Receive Date: 20190315
  Receipt Date: 20190315
  Transmission Date: 20190418
  Serious: Yes (Other)
  Sender: FDA-Public Use
  Company Number: US-BAUSCH-BL-2019-007208

PATIENT
  Sex: Female

DRUGS (1)
  1. TIMOPTIC [Suspect]
     Active Substance: TIMOLOL MALEATE
     Indication: INTRAOCULAR PRESSURE INCREASED
     Route: 065

REACTIONS (3)
  - Intraocular pressure increased [Unknown]
  - Eye swelling [Unknown]
  - Condition aggravated [Unknown]
